FAERS Safety Report 19620857 (Version 1)
Quarter: 2021Q3

REPORT INFORMATION
  Report Type: Spontaneous
  Country: US (occurrence: US)
  Receive Date: 20210728
  Receipt Date: 20210728
  Transmission Date: 20211014
  Serious: No
  Sender: FDA-Public Use
  Company Number: None

PATIENT
  Age: 50 Year
  Sex: Female
  Weight: 56.25 kg

DRUGS (3)
  1. GAMMAKED [Suspect]
     Active Substance: HUMAN IMMUNOGLOBULIN G
     Indication: POLYNEUROPATHY
     Dosage: ?          OTHER FREQUENCY:Q2 WEEKS;?
     Route: 041
  2. GAMMAKED [Concomitant]
     Active Substance: HUMAN IMMUNOGLOBULIN G
  3. GAMMAKED [Suspect]
     Active Substance: HUMAN IMMUNOGLOBULIN G
     Indication: POLYNEUROPATHY
     Dosage: ?          OTHER FREQUENCY:Q2 WEEKS;?
     Route: 041

REACTIONS (4)
  - Fatigue [None]
  - Burning sensation [None]
  - Pain [None]
  - Dysstasia [None]

NARRATIVE: CASE EVENT DATE: 20210706
